FAERS Safety Report 16934017 (Version 1)
Quarter: 2019Q4

REPORT INFORMATION
  Report Type: Spontaneous
  Country: BR (occurrence: BR)
  Receive Date: 20191018
  Receipt Date: 20191018
  Transmission Date: 20200122
  Serious: Yes (Other)
  Sender: FDA-Public Use
  Company Number: BR-TORRENT-00005134

PATIENT
  Age: 53 Year
  Sex: Female
  Weight: 62 kg

DRUGS (4)
  1. NEBLOCK [Suspect]
     Active Substance: NEBIVOLOL HYDROCHLORIDE
     Indication: HYPERTENSION
     Dosage: ONE TABLET DAILY
     Route: 048
     Dates: start: 2016, end: 20190914
  2. ACETYLSALICYLIC ACID [Concomitant]
     Active Substance: ASPIRIN
     Indication: HYPERLIPIDAEMIA
     Dosage: 1 TABLET AFTER LUNCH
     Route: 048
     Dates: start: 201810
  3. OLMECOR [Suspect]
     Active Substance: OLMESARTAN MEDOXOMIL
     Indication: HYPERTENSION
     Dosage: 3 TABLETS DAILY
     Dates: start: 2016, end: 20190914
  4. OLMECOR [Suspect]
     Active Substance: OLMESARTAN MEDOXOMIL
     Indication: HYPERTENSION
     Dosage: 2 TABLETS DAILY
     Dates: start: 2016, end: 20190914

REACTIONS (4)
  - Walking disability [Recovered/Resolved]
  - Cerebrovascular accident [Recovered/Resolved]
  - Drug ineffective [Unknown]
  - Cardiac arrest [Recovered/Resolved]

NARRATIVE: CASE EVENT DATE: 201810
